FAERS Safety Report 8809413 (Version 2)
Quarter: 2012Q4

REPORT INFORMATION
  Report Type: 
  Country: US (occurrence: US)
  Receive Date: 20120926
  Receipt Date: 20121115
  Transmission Date: 20130627
  Serious: No
  Sender: FDA-Public Use
  Company Number: US-B.I. PHARMACEUTICALS,INC./RIDGEFIELD-2012-BP-23365BP

PATIENT
  Sex: Female

DRUGS (8)
  1. SPIRIVA [Suspect]
     Indication: CHRONIC OBSTRUCTIVE PULMONARY DISEASE
     Dosage: 18 mcg
     Route: 055
     Dates: start: 2009, end: 2009
  2. SPIRIVA [Suspect]
     Dosage: 18 mcg
     Route: 055
     Dates: start: 20121101
  3. EXELON [Concomitant]
     Indication: ENCEPHALOPATHY
     Dosage: 6 mg
     Route: 048
  4. VERAPAMIL [Concomitant]
     Indication: HYPERTENSION
     Dosage: 360 mg
     Route: 048
  5. MIACALCIN [Concomitant]
     Indication: OSTEOARTHRITIS
     Route: 048
  6. EXTRA STRENGTH TYLENOL [Concomitant]
     Indication: OSTEOARTHRITIS
  7. RESTASIS [Concomitant]
     Indication: DRY EYE
  8. PROVENTIL [Concomitant]
     Indication: ASTHMA
     Route: 055

REACTIONS (6)
  - Dyspnoea [Not Recovered/Not Resolved]
  - Gait disturbance [Not Recovered/Not Resolved]
  - Drug ineffective [Not Recovered/Not Resolved]
  - Dyspnoea [Not Recovered/Not Resolved]
  - Product quality issue [Unknown]
  - Product quality issue [Unknown]
